FAERS Safety Report 9989084 (Version 1)
Quarter: 2014Q1

REPORT INFORMATION
  Report Type: Report from Study
  Country: US (occurrence: US)
  Receive Date: 20140310
  Receipt Date: 20140310
  Transmission Date: 20141002
  Serious: No
  Sender: FDA-Public Use
  Company Number: US-ABBVIE-13P-163-1128859-00

PATIENT
  Sex: Female

DRUGS (11)
  1. HUMIRA [Suspect]
     Indication: RHEUMATOID ARTHRITIS
  2. HUMIRA [Suspect]
     Dates: start: 20130801
  3. PLAVIX [Concomitant]
     Indication: CORONARY ARTERIAL STENT INSERTION
  4. WELLBUTRIN [Concomitant]
     Indication: DEPRESSION
     Dosage: DAILY
  5. NAPROXEN [Concomitant]
     Indication: RHEUMATOID ARTHRITIS
  6. PRAVASTATIN [Concomitant]
     Indication: CORONARY ARTERIAL STENT INSERTION
  7. METOPROLOL [Concomitant]
     Indication: HYPERTENSION
     Dosage: 1/2 TAB DAILY
  8. METOPROLOL [Concomitant]
     Indication: CORONARY ARTERIAL STENT INSERTION
  9. PLAQUENIL [Concomitant]
     Indication: RHEUMATOID ARTHRITIS
  10. ASPIRIN [Concomitant]
     Indication: CORONARY ARTERIAL STENT INSERTION
  11. HYDROXYZINE HCL [Concomitant]
     Indication: PRURITUS

REACTIONS (1)
  - Injection site pain [Unknown]
